FAERS Safety Report 4981399-4 (Version None)
Quarter: 2006Q2

REPORT INFORMATION
  Report Type: 
  Country: None (occurrence: None)
  Receive Date: 20060424
  Receipt Date: 20050512
  Transmission Date: 20061013
  Serious: Yes (Hospitalization)
  Sender: FDA-Public Use
  Company Number: IT-MERCK-0511ITA00009

PATIENT
  Age: 39 Year
  Sex: Male
  Weight: 69 kg

DRUGS (6)
  1. VIOXX [Suspect]
     Indication: PAIN IN EXTREMITY
     Route: 048
     Dates: start: 20020301, end: 20020423
  2. VIOXX [Suspect]
     Route: 048
     Dates: start: 20020503, end: 20040401
  3. VIOXX [Suspect]
     Route: 048
     Dates: start: 20020423, end: 20020501
  4. PREDNISONE [Concomitant]
     Route: 048
     Dates: start: 20020503
  5. TICLOPIDINE HYDROCHLORIDE [Concomitant]
     Route: 065
  6. OMEPRAZOLE [Concomitant]
     Route: 065

REACTIONS (4)
  - ACUTE MYOCARDIAL INFARCTION [None]
  - HYPERTENSION [None]
  - MYOSITIS [None]
  - THROMBOSIS [None]
